FAERS Safety Report 13245651 (Version 1)
Quarter: 2017Q1

REPORT INFORMATION
  Report Type: Spontaneous
  Country: DE (occurrence: DE)
  Receive Date: 20170217
  Receipt Date: 20170217
  Transmission Date: 20170428
  Serious: No
  Sender: FDA-Public Use
  Company Number: DE-PERNIX THERAPEUTICS-2016PT000049

PATIENT

DRUGS (3)
  1. DORITHRICIN                        /00832701/ [Concomitant]
  2. TANTUM                             /00052302/ [Concomitant]
  3. KEIMAX [Suspect]
     Active Substance: CEFTIBUTEN
     Indication: SINUSITIS
     Dosage: UNK MG, UNK
     Route: 048
     Dates: start: 20160211, end: 20160220

REACTIONS (2)
  - Head discomfort [Unknown]
  - Somnolence [Unknown]

NARRATIVE: CASE EVENT DATE: 201602
